FAERS Safety Report 10409011 (Version 1)
Quarter: 2014Q3

REPORT INFORMATION
  Report Type: Spontaneous
  Country: US (occurrence: US)
  Receive Date: 20140826
  Receipt Date: 20140826
  Transmission Date: 20150326
  Serious: No
  Sender: FDA-Public Use
  Company Number: US-SA-2014SA111058

PATIENT
  Age: 68 Year
  Sex: Female

DRUGS (1)
  1. MULTAQ [Suspect]
     Active Substance: DRONEDARONE
     Indication: ATRIAL FIBRILLATION
     Dosage: TAKEN MULTAQ FOR 4 YEARS
     Route: 048

REACTIONS (3)
  - Blood urea increased [Unknown]
  - Hypertension [Not Recovered/Not Resolved]
  - Blood creatinine increased [Unknown]
